FAERS Safety Report 21181238 (Version 1)
Quarter: 2022Q3

REPORT INFORMATION
  Report Type: Report from Study
  Country: FR (occurrence: FR)
  Receive Date: 20220806
  Receipt Date: 20220806
  Transmission Date: 20221026
  Serious: Yes (Hospitalization)
  Sender: FDA-Public Use
  Company Number: FR-TAKEDA-2022TUS051598

PATIENT
  Age: 8 Year
  Sex: Male

DRUGS (16)
  1. TEDUGLUTIDE [Suspect]
     Active Substance: TEDUGLUTIDE
     Indication: Short-bowel syndrome
     Dosage: 1.26 MILLIGRAM, QD
     Route: 042
     Dates: start: 20220120, end: 20220214
  2. TEDUGLUTIDE [Suspect]
     Active Substance: TEDUGLUTIDE
     Indication: Short-bowel syndrome
     Dosage: 1.26 MILLIGRAM, QD
     Route: 042
     Dates: start: 20220120, end: 20220214
  3. TEDUGLUTIDE [Suspect]
     Active Substance: TEDUGLUTIDE
     Indication: Short-bowel syndrome
     Dosage: 1.26 MILLIGRAM, QD
     Route: 042
     Dates: start: 20220120, end: 20220214
  4. TEDUGLUTIDE [Suspect]
     Active Substance: TEDUGLUTIDE
     Indication: Short-bowel syndrome
     Dosage: 1.26 MILLIGRAM, QD
     Route: 042
     Dates: start: 20220120, end: 20220214
  5. TEDUGLUTIDE [Suspect]
     Active Substance: TEDUGLUTIDE
     Dosage: 0.645 MILLIGRAM, QD
     Route: 042
     Dates: start: 20220222, end: 20220227
  6. TEDUGLUTIDE [Suspect]
     Active Substance: TEDUGLUTIDE
     Dosage: 0.645 MILLIGRAM, QD
     Route: 042
     Dates: start: 20220222, end: 20220227
  7. TEDUGLUTIDE [Suspect]
     Active Substance: TEDUGLUTIDE
     Dosage: 0.645 MILLIGRAM, QD
     Route: 042
     Dates: start: 20220222, end: 20220227
  8. TEDUGLUTIDE [Suspect]
     Active Substance: TEDUGLUTIDE
     Dosage: 0.645 MILLIGRAM, QD
     Route: 042
     Dates: start: 20220222, end: 20220227
  9. TEDUGLUTIDE [Suspect]
     Active Substance: TEDUGLUTIDE
     Dosage: 1.29 MILLIGRAM, QD
     Route: 042
     Dates: start: 20220228
  10. TEDUGLUTIDE [Suspect]
     Active Substance: TEDUGLUTIDE
     Dosage: 1.29 MILLIGRAM, QD
     Route: 042
     Dates: start: 20220228
  11. TEDUGLUTIDE [Suspect]
     Active Substance: TEDUGLUTIDE
     Dosage: 1.29 MILLIGRAM, QD
     Route: 042
     Dates: start: 20220228
  12. TEDUGLUTIDE [Suspect]
     Active Substance: TEDUGLUTIDE
     Dosage: 1.29 MILLIGRAM, QD
     Route: 042
     Dates: start: 20220228
  13. URSODIOL [Concomitant]
     Active Substance: URSODIOL
     Indication: Infected bite
     Dosage: 500 MILLIGRAM, QD
     Route: 048
     Dates: start: 202201
  14. AMIKACIN [Concomitant]
     Active Substance: AMIKACIN
     Indication: Staphylococcal infection
     Dosage: 20 MILLIGRAM/KILOGRAM, QD
     Route: 042
     Dates: start: 20220214, end: 20220221
  15. TARGOCID [Concomitant]
     Active Substance: TEICOPLANIN
     Indication: Staphylococcal infection
     Dosage: 10 MILLIGRAM/KILOGRAM, QD
     Route: 042
     Dates: start: 20220214, end: 20220221
  16. ACETAMINOPHEN [Concomitant]
     Active Substance: ACETAMINOPHEN
     Indication: Pyrexia
     Dosage: 1 INTERNATIONAL UNIT/KILOGRAM, QID
     Route: 048
     Dates: start: 20220213, end: 20220214

REACTIONS (1)
  - Complication associated with device [Recovered/Resolved]

NARRATIVE: CASE EVENT DATE: 20220314
